FAERS Safety Report 4837742-X (Version None)
Quarter: 2005Q4

REPORT INFORMATION
  Report Type: 
  Country: None (occurrence: None)
  Receive Date: 20051128
  Receipt Date: 20050929
  Transmission Date: 20060501
  Serious: Yes (Death, Hospitalization)
  Sender: FDA-Public Use
  Company Number: US-MERCK-0510USA00347

PATIENT
  Age: 80 Year
  Sex: Male
  Weight: 75 kg

DRUGS (13)
  1. VIOXX [Suspect]
     Indication: RHEUMATOID ARTHRITIS
     Route: 048
     Dates: start: 20000728, end: 20000901
  2. VIOXX [Suspect]
     Route: 048
     Dates: start: 20000901, end: 20010201
  3. TEQUIN [Concomitant]
     Route: 065
  4. LANOXIN [Concomitant]
     Route: 065
  5. PREVACID [Concomitant]
     Route: 065
     Dates: start: 20000510
  6. ENBREL [Concomitant]
     Route: 065
     Dates: start: 20000510
  7. METHOTREXATE [Concomitant]
     Route: 065
     Dates: start: 20000510
  8. SERZONE [Concomitant]
     Route: 065
     Dates: start: 20000510
  9. IRON (UNSPECIFIED) [Concomitant]
     Route: 065
  10. VICODIN [Concomitant]
     Route: 065
  11. PREDNISONE [Concomitant]
     Route: 065
     Dates: start: 20000510
  12. ALBUTEROL [Concomitant]
     Route: 065
  13. PLAQUENIL [Concomitant]
     Route: 065
     Dates: start: 20000728

REACTIONS (21)
  - ATRIAL FIBRILLATION [None]
  - BARRETT'S OESOPHAGUS [None]
  - CARDIO-RESPIRATORY ARREST [None]
  - CEREBROVASCULAR ACCIDENT [None]
  - CHEST PAIN [None]
  - CLOSED HEAD INJURY [None]
  - COMA [None]
  - CONFUSIONAL STATE [None]
  - CONJUNCTIVITIS [None]
  - DEPRESSED LEVEL OF CONSCIOUSNESS [None]
  - DISORIENTATION [None]
  - ERYTHEMA [None]
  - GASTRITIS HAEMORRHAGIC [None]
  - HELICOBACTER INFECTION [None]
  - PNEUMONIA [None]
  - PNEUMONIA ASPIRATION [None]
  - PYREXIA [None]
  - RESPIRATORY FAILURE [None]
  - SEPSIS [None]
  - URTICARIA [None]
  - VERBAL ABUSE [None]
